FAERS Safety Report 5692376-2 (Version None)
Quarter: 2008Q1

REPORT INFORMATION
  Report Type: 
  Country: None (occurrence: None)
  Receive Date: 20080331
  Receipt Date: 20080320
  Transmission Date: 20080703
  Serious: Yes (Hospitalization, Other)
  Sender: FDA-Public Use
  Company Number: 167-C5013-07081153

PATIENT
  Age: 58 Year
  Sex: Male
  Weight: 86 kg

DRUGS (16)
  1. CC-5013 (LENALIDOMIDE) (CAPSULES) [Suspect]
     Indication: MULTIPLE MYELOMA
     Dosage: 25 MG, DL-2L, ORAL; 25 MG, DAILY, CYCLE, ORAL; 15 MG, DAILY, CYCLE 3, ORAL
     Route: 048
     Dates: start: 20070808, end: 20070820
  2. CC-5013 (LENALIDOMIDE) (CAPSULES) [Suspect]
     Indication: MULTIPLE MYELOMA
     Dosage: 25 MG, DL-2L, ORAL; 25 MG, DAILY, CYCLE, ORAL; 15 MG, DAILY, CYCLE 3, ORAL
     Route: 048
     Dates: start: 20070711
  3. CC-5013 (LENALIDOMIDE) (CAPSULES) [Suspect]
     Indication: MULTIPLE MYELOMA
     Dosage: 25 MG, DL-2L, ORAL; 25 MG, DAILY, CYCLE, ORAL; 15 MG, DAILY, CYCLE 3, ORAL
     Route: 048
     Dates: start: 20070926
  4. DEXAMETHASONE TAB [Suspect]
     Indication: MULTIPLE MYELOMA
     Dosage: 40 MG, CYCLE 2; 40 MG, CYCLE 3
     Dates: start: 20070808, end: 20070820
  5. DEXAMETHASONE TAB [Suspect]
     Indication: MULTIPLE MYELOMA
     Dosage: 40 MG, CYCLE 2; 40 MG, CYCLE 3
     Dates: start: 20070711
  6. DEXAMETHASONE TAB [Suspect]
     Indication: MULTIPLE MYELOMA
     Dosage: 40 MG, CYCLE 2; 40 MG, CYCLE 3
     Dates: start: 20070926
  7. PREDNISOLONE [Concomitant]
  8. INSULIN (INSULIN) [Concomitant]
  9. CLODRONATE (CLODRONATE DISODIUM) [Concomitant]
  10. AMITRIPTYLINE HCL [Concomitant]
  11. CODEINE PHSOPHATE (CODEINE PHOSPHATE) [Concomitant]
  12. ACV (ACICLOVIR) [Concomitant]
  13. MORPHINE [Concomitant]
  14. DIPYRIDAMOLE [Concomitant]
  15. BLOOD  (BLOOD TRANSFUSION, AUXILIARY PRODUCTS) [Concomitant]
  16. NEULASTA [Concomitant]

REACTIONS (1)
  - ACUTE CORONARY SYNDROME [None]
